FAERS Safety Report 9828250 (Version 3)
Quarter: 2014Q2

REPORT INFORMATION
  Report Type: Spontaneous
  Country: GB (occurrence: GB)
  Receive Date: 20140117
  Receipt Date: 20140528
  Transmission Date: 20141212
  Serious: Yes (Death, Other)
  Sender: FDA-Public Use
  Company Number: GB-PFIZER INC-2014014025

PATIENT
  Age: 33 Year
  Sex: Female
  Weight: 60 kg

DRUGS (7)
  1. MORPHINE SULFATE [Suspect]
     Dosage: UNK
  2. DUROGESIC [Suspect]
     Dosage: 50 UG, Q1H
     Route: 062
  3. QUETIAPINE [Concomitant]
     Dosage: UNK
  4. DULOXETINE [Concomitant]
     Dosage: UNK
  5. HYOSCINE [Concomitant]
     Dosage: UNK
  6. CLONAZEPAM [Concomitant]
     Dosage: UNK
  7. DIHYDROCODEINE BITARTRATE [Concomitant]
     Dosage: UNK

REACTIONS (4)
  - Toxicity to various agents [Fatal]
  - Drug diversion [Unknown]
  - Drug abuse [Unknown]
  - Pulmonary oedema [Unknown]
